FAERS Safety Report 25951685 (Version 3)
Quarter: 2025Q4

REPORT INFORMATION
  Report Type: Report from Study
  Country: US (occurrence: None)
  Receive Date: 20251023
  Receipt Date: 20251121
  Transmission Date: 20260118
  Serious: Yes (Other)
  Sender: UCB
  Company Number: US-UCBSA-2025041587

PATIENT
  Age: 34 Year

DRUGS (4)
  1. BIMEKIZUMAB [Suspect]
     Active Substance: BIMEKIZUMAB
     Indication: Hidradenitis
     Dosage: 320 MILLIGRAM, EV 2 WEEKS(QOW)
  2. METFORMIN [Concomitant]
     Active Substance: METFORMIN HYDROCHLORIDE
     Indication: Hidradenitis
     Dosage: 500 MILLIGRAM, ONCE DAILY (QD)
  3. SPIRONOLACTONE [Concomitant]
     Active Substance: SPIRONOLACTONE
     Indication: Hidradenitis
     Dosage: 100 MILLIGRAM, ONCE DAILY (QD)
  4. FLUTICASONE [Concomitant]
     Active Substance: FLUTICASONE
     Indication: Hypersensitivity
     Dosage: UNK, TWO SPRAYS IN EACH NOSTRIL ONCE A DAY

REACTIONS (4)
  - Pseudomonas infection [Recovering/Resolving]
  - Oral infection [Recovered/Resolved]
  - Injection site pain [Recovered/Resolved]
  - Pharyngitis streptococcal [Not Recovered/Not Resolved]
